FAERS Safety Report 21707473 (Version 1)
Quarter: 2022Q4

REPORT INFORMATION
  Report Type: Spontaneous
  Country: DE (occurrence: DE)
  Receive Date: 20221209
  Receipt Date: 20221209
  Transmission Date: 20230113
  Serious: Yes (Other)
  Sender: FDA-Public Use
  Company Number: DE-TEVA-2022-DE-2832892

PATIENT

DRUGS (1)
  1. COPAXONE [Suspect]
     Active Substance: GLATIRAMER ACETATE
     Indication: Product used for unknown indication
     Dosage: UNKNOWN FORM STRENGTH
     Route: 065

REACTIONS (3)
  - Magnetic resonance imaging abnormal [Unknown]
  - Feeling abnormal [Unknown]
  - Impaired quality of life [Unknown]
